FAERS Safety Report 25897613 (Version 2)
Quarter: 2025Q4

REPORT INFORMATION
  Report Type: Spontaneous
  Country: EU (occurrence: EU)
  Receive Date: 20251008
  Receipt Date: 20251104
  Transmission Date: 20260119
  Serious: Yes (Hospitalization)
  Sender: AMGEN
  Company Number: EU-AMGEN-GRCSP2025196077

PATIENT
  Age: 32 Year
  Sex: Male

DRUGS (4)
  1. ETELCALCETIDE [Suspect]
     Active Substance: ETELCALCETIDE
     Indication: Hyperparathyroidism secondary
     Dosage: UNK
     Route: 065
  2. CINACALCET HYDROCHLORIDE [Suspect]
     Active Substance: CINACALCET HYDROCHLORIDE
     Indication: Hyperparathyroidism
     Dosage: UNK
     Route: 065
  3. CINACALCET HYDROCHLORIDE [Suspect]
     Active Substance: CINACALCET HYDROCHLORIDE
     Dosage: UNK
     Route: 065
  4. PARICALCITOL [Concomitant]
     Active Substance: PARICALCITOL
     Indication: Hyperparathyroidism secondary

REACTIONS (3)
  - Parathyroid tumour benign [Unknown]
  - Drug hypersensitivity [Unknown]
  - Drug ineffective [Unknown]
